FAERS Safety Report 11143067 (Version 1)
Quarter: 2015Q2

REPORT INFORMATION
  Report Type: Spontaneous
  Country: US (occurrence: US)
  Receive Date: 20150528
  Receipt Date: 20150528
  Transmission Date: 20150821
  Serious: Yes (Other)
  Sender: FDA-Public Use
  Company Number: US-JNJCP-30000284458

PATIENT
  Sex: Female

DRUGS (1)
  1. NEUTROGENA PRODUCTS [Suspect]
     Active Substance: UNSPECIFIED INGREDIENT
     Indication: PROPHYLAXIS
     Route: 061
     Dates: end: 2014

REACTIONS (1)
  - Breast cancer [Not Recovered/Not Resolved]
